FAERS Safety Report 4735713-5 (Version None)
Quarter: 2005Q3

REPORT INFORMATION
  Report Type: 
  Country: None (occurrence: None)
  Receive Date: 20050805
  Receipt Date: 20050727
  Transmission Date: 20060218
  Serious: Yes (Hospitalization)
  Sender: FDA-Public Use
  Company Number: JP-JNJFOC-20050603224

PATIENT
  Sex: Male

DRUGS (6)
  1. ITRIZOLE [Suspect]
     Route: 048
     Dates: start: 20041110
  2. ITRIZOLE [Suspect]
     Route: 048
     Dates: start: 20041110
  3. ITRIZOLE [Suspect]
     Indication: ONYCHOMYCOSIS
     Route: 048
     Dates: start: 20041110
  4. PIPERACILLIN SODIUM [Concomitant]
     Dates: start: 20041118, end: 20041122
  5. AMPICILLIN SODIUM [Concomitant]
     Route: 048
     Dates: start: 20041123, end: 20041206
  6. TEPRENONE [Concomitant]
     Route: 048
     Dates: start: 20041123, end: 20041206

REACTIONS (1)
  - CELLULITIS [None]
